FAERS Safety Report 13329053 (Version 1)
Quarter: 2017Q1

REPORT INFORMATION
  Report Type: Spontaneous
  Country: US (occurrence: US)
  Receive Date: 20170313
  Receipt Date: 20170313
  Transmission Date: 20170428
  Serious: Yes (Hospitalization, Other)
  Sender: FDA-Public Use
  Company Number: None

PATIENT
  Age: 47 Year
  Sex: Female
  Weight: 67.5 kg

DRUGS (7)
  1. TRAZODONE [Concomitant]
     Active Substance: TRAZODONE HYDROCHLORIDE
  2. GABAPENTIN. [Concomitant]
     Active Substance: GABAPENTIN
  3. RIFAMPIN. [Suspect]
     Active Substance: RIFAMPIN
     Indication: MENINGITIS BACTERIAL
     Dosage: ?          QUANTITY:8 CAPSULE(S);?
     Route: 048
     Dates: start: 20170220, end: 20170222
  4. IVIG [Concomitant]
     Active Substance: HUMAN IMMUNOGLOBULIN G
  5. ASA [Concomitant]
     Active Substance: ASPIRIN
  6. OMEPRAZOLE. [Concomitant]
     Active Substance: OMEPRAZOLE
  7. COUMADIN [Concomitant]
     Active Substance: WARFARIN SODIUM

REACTIONS (7)
  - Swelling face [None]
  - Chills [None]
  - Vomiting [None]
  - Muscle spasms [None]
  - Dizziness [None]
  - Abdominal pain [None]
  - International normalised ratio decreased [None]

NARRATIVE: CASE EVENT DATE: 20170222
